FAERS Safety Report 14958987 (Version 1)
Quarter: 2018Q2

REPORT INFORMATION
  Report Type: Spontaneous
  Country: US (occurrence: US)
  Receive Date: 20180531
  Receipt Date: 20180531
  Transmission Date: 20180711
  Serious: No
  Sender: FDA-Public Use
  Company Number: US-JNJFOC-20180521212

PATIENT
  Sex: Female

DRUGS (10)
  1. PROVIGIL [Concomitant]
     Active Substance: MODAFINIL
     Indication: SLEEP APNOEA SYNDROME
     Route: 065
  2. NORTRIPTYLINE [Concomitant]
     Active Substance: NORTRIPTYLINE
     Route: 065
  3. OMEPRAZOLE. [Concomitant]
     Active Substance: OMEPRAZOLE
     Route: 065
  4. SERTRALINE [Concomitant]
     Active Substance: SERTRALINE HYDROCHLORIDE
     Route: 065
  5. TOPAMAX [Suspect]
     Active Substance: TOPIRAMATE
     Indication: MIGRAINE PROPHYLAXIS
     Route: 048
     Dates: start: 201805
  6. SYMBICORT [Concomitant]
     Active Substance: BUDESONIDE\FORMOTEROL FUMARATE DIHYDRATE
     Route: 065
  7. ZETIA [Concomitant]
     Active Substance: EZETIMIBE
     Route: 065
  8. ATORVASTATIN [Concomitant]
     Active Substance: ATORVASTATIN
     Route: 065
  9. TOPAMAX [Suspect]
     Active Substance: TOPIRAMATE
     Indication: MIGRAINE PROPHYLAXIS
     Route: 048
  10. ZOMIG [Concomitant]
     Active Substance: ZOLMITRIPTAN
     Indication: MIGRAINE
     Dosage: AS NEEDED
     Route: 065

REACTIONS (10)
  - Feeling drunk [Unknown]
  - Throat irritation [Unknown]
  - Somnolence [Unknown]
  - Coordination abnormal [Unknown]
  - Fatigue [Unknown]
  - Insomnia [Unknown]
  - Gait disturbance [Unknown]
  - Neurological symptom [Unknown]
  - Stress [Unknown]
  - Syncope [Unknown]
